FAERS Safety Report 20591009 (Version 2)
Quarter: 2022Q1

REPORT INFORMATION
  Report Type: Report from Study
  Country: US (occurrence: US)
  Receive Date: 20220314
  Receipt Date: 20220317
  Transmission Date: 20220423
  Serious: Yes (Other)
  Sender: FDA-Public Use
  Company Number: US-JAZZ-2022-US-007052

PATIENT
  Sex: Male
  Weight: 78.912 kg

DRUGS (11)
  1. XYWAV [Suspect]
     Active Substance: CALCIUM OXYBATE\MAGNESIUM OXYBATE\POTASSIUM OXYBATE\SODIUM OXYBATE
     Indication: Narcolepsy
     Dosage: 4.5 GRAM, BID
     Route: 048
     Dates: start: 202101
  2. XYWAV [Suspect]
     Active Substance: CALCIUM OXYBATE\MAGNESIUM OXYBATE\POTASSIUM OXYBATE\SODIUM OXYBATE
     Indication: Cataplexy
  3. XYWAV [Suspect]
     Active Substance: CALCIUM OXYBATE\MAGNESIUM OXYBATE\POTASSIUM OXYBATE\SODIUM OXYBATE
     Indication: Somnolence
  4. UBRELVY [Concomitant]
     Active Substance: UBROGEPANT
     Dosage: 0000
     Dates: start: 20201012
  5. DEXMETHYLPHENIDATE [Concomitant]
     Active Substance: DEXMETHYLPHENIDATE
     Dosage: 0000
     Dates: start: 20200903
  6. FLUOXETINE HYDROCHLORIDE [Concomitant]
     Active Substance: FLUOXETINE HYDROCHLORIDE
     Dosage: 0000
     Dates: start: 20200915
  7. LAMOTRIGINE [Concomitant]
     Active Substance: LAMOTRIGINE
     Route: 048
  8. MELOXICAM [Concomitant]
     Active Substance: MELOXICAM
     Dosage: 0000
     Dates: start: 20220105
  9. TRAMADOL [Concomitant]
     Active Substance: TRAMADOL
     Dosage: UNK
     Route: 048
     Dates: start: 20220302
  10. TRIAMCINOLONE [Concomitant]
     Active Substance: TRIAMCINOLONE
     Dosage: UNK
  11. UBROGEPANT [Concomitant]
     Active Substance: UBROGEPANT
     Dosage: UNK
     Route: 048
     Dates: start: 20220225

REACTIONS (5)
  - Optic neuropathy [Unknown]
  - Tachycardia [Unknown]
  - Migraine [Unknown]
  - Eyelid ptosis [Unknown]
  - Transient global amnesia [Unknown]
